FAERS Safety Report 6466226-0 (Version None)
Quarter: 2009Q4

REPORT INFORMATION
  Report Type: 
  Country: None (occurrence: None)
  Receive Date: 20091202
  Receipt Date: 20091120
  Transmission Date: 20100525
  Serious: Yes (Hospitalization, Other)
  Sender: FDA-Public Use
  Company Number: PHHY2009FI51062

PATIENT
  Sex: Male

DRUGS (5)
  1. LEPONEX [Suspect]
     Indication: SCHIZOPHRENIA
     Dosage: 100 MG/DAY
     Route: 048
  2. LEPONEX [Suspect]
     Dosage: 400 MG/DAY
     Route: 048
     Dates: start: 20090601, end: 20091001
  3. LEPONEX [Suspect]
     Dosage: 100 MG/DAY
     Route: 048
     Dates: start: 20091030, end: 20091120
  4. OLANZAPINE [Suspect]
     Indication: SCHIZOPHRENIA
     Dosage: 40 MG/DAY
     Route: 048
     Dates: end: 20091001
  5. OLANZAPINE [Suspect]
     Dosage: 30 MG/DAY
     Route: 048
     Dates: start: 20091027

REACTIONS (4)
  - IMMUNOGLOBULINS DECREASED [None]
  - INFECTION [None]
  - NEUTROPENIA [None]
  - WHITE BLOOD CELL COUNT DECREASED [None]
